FAERS Safety Report 15485357 (Version 1)
Quarter: 2018Q4

REPORT INFORMATION
  Report Type: Spontaneous
  Country: US (occurrence: US)
  Receive Date: 20181010
  Receipt Date: 20181010
  Transmission Date: 20190205
  Serious: Yes (Hospitalization)
  Sender: FDA-Public Use
  Company Number: US-ROCHE-2152262

PATIENT
  Sex: Male

DRUGS (1)
  1. ZELBORAF [Suspect]
     Active Substance: VEMURAFENIB
     Indication: LANGERHANS^ CELL HISTIOCYTOSIS
     Dosage: 120MG IN THE MORNING, 240MG IN; CURRENT
     Route: 048
     Dates: start: 20180622

REACTIONS (4)
  - Rash [Unknown]
  - Pyrexia [Unknown]
  - Off label use [Unknown]
  - Intentional product use issue [Unknown]
